FAERS Safety Report 9814780 (Version 2)
Quarter: 2014Q1

REPORT INFORMATION
  Report Type: Spontaneous
  Country: US (occurrence: US)
  Receive Date: 20140113
  Receipt Date: 20140121
  Transmission Date: 20141002
  Serious: Yes (Other)
  Sender: FDA-Public Use
  Company Number: US-ABBVIE-14P-163-1187029-00

PATIENT
  Sex: Female

DRUGS (2)
  1. VICODIN ES 7.5/300 (MIKART) [Suspect]
     Indication: PRODUCT USED FOR UNKNOWN INDICATION
     Dosage: 7.5/300
  2. NORCO [Suspect]
     Indication: JOINT INJURY
     Dates: start: 201306

REACTIONS (5)
  - Joint injury [Unknown]
  - Drug effect decreased [Not Recovered/Not Resolved]
  - Pain [Unknown]
  - Rash pustular [Unknown]
  - Gastric disorder [Unknown]
